FAERS Safety Report 23445753 (Version 2)
Quarter: 2024Q1

REPORT INFORMATION
  Report Type: Spontaneous
  Country: JP (occurrence: JP)
  Receive Date: 20240126
  Receipt Date: 20240328
  Transmission Date: 20240409
  Serious: Yes (Other)
  Sender: FDA-Public Use
  Company Number: JP-TEVA-VS-3138001

PATIENT
  Age: 67 Year
  Sex: Male

DRUGS (1)
  1. TRISENOX [Suspect]
     Active Substance: ARSENIC TRIOXIDE
     Indication: Acute promyelocytic leukaemia
     Route: 042

REACTIONS (4)
  - Sepsis [Recovering/Resolving]
  - Bradycardia [Unknown]
  - Atrioventricular block second degree [Unknown]
  - Electrocardiogram QT prolonged [Unknown]
